FAERS Safety Report 5720758-9 (Version None)
Quarter: 2008Q2

REPORT INFORMATION
  Report Type: 
  Country: None (occurrence: None)
  Receive Date: 20080425
  Receipt Date: 20080425
  Transmission Date: 20081010
  Serious: No
  Sender: FDA-Public Use
  Company Number: None

PATIENT
  Age: 77 Year
  Sex: Male

DRUGS (1)
  1. LISINOPRIL [Suspect]
     Dosage: MG  EVERY DAY  PO
     Route: 048
     Dates: start: 20070806, end: 20070919

REACTIONS (2)
  - COUGH [None]
  - WHEEZING [None]
